FAERS Safety Report 21790498 (Version 1)
Quarter: 2022Q4

REPORT INFORMATION
  Report Type: Report from Study
  Country: US (occurrence: US)
  Receive Date: 20221228
  Receipt Date: 20221228
  Transmission Date: 20230112
  Serious: No
  Sender: FDA-Public Use
  Company Number: US-CLOVIS ONCOLOGY-CLO-2022-000292

PATIENT
  Age: 72 Year
  Sex: Female

DRUGS (4)
  1. RUBRACA [Suspect]
     Active Substance: RUCAPARIB CAMSYLATE
     Indication: Ovarian cancer
     Dosage: 600 MG AM/300 MG PM
     Route: 048
     Dates: start: 20210326
  2. RUBRACA [Suspect]
     Active Substance: RUCAPARIB CAMSYLATE
     Dosage: 600 MG AM/300 MG PM
     Route: 048
     Dates: start: 20210326
  3. RUBRACA [Suspect]
     Active Substance: RUCAPARIB CAMSYLATE
     Dosage: 600 MG AM/300 MG PM
     Route: 048
     Dates: start: 20210326
  4. RUBRACA [Suspect]
     Active Substance: RUCAPARIB CAMSYLATE
     Dosage: 600 MG AM/300 MG PM
     Route: 048
     Dates: start: 20210326

REACTIONS (8)
  - Carbohydrate antigen 125 increased [Not Recovered/Not Resolved]
  - Glossodynia [Unknown]
  - Sinus disorder [Unknown]
  - Peripheral swelling [Unknown]
  - Abdominal discomfort [Unknown]
  - Sunburn [Recovering/Resolving]
  - Dysgeusia [Unknown]
  - Fatigue [Recovering/Resolving]

NARRATIVE: CASE EVENT DATE: 20220601
